FAERS Safety Report 6457043-6 (Version None)
Quarter: 2009Q4

REPORT INFORMATION
  Report Type: 
  Country: None (occurrence: None)
  Receive Date: 20091125
  Receipt Date: 20091118
  Transmission Date: 20100525
  Serious: Yes (Other)
  Sender: FDA-Public Use
  Company Number: A0814033A

PATIENT
  Sex: Female
  Weight: 29 kg

DRUGS (1)
  1. AEROLIN [Suspect]
     Indication: ASTHMA
     Route: 055
     Dates: start: 20070101

REACTIONS (2)
  - CHOKING [None]
  - PRODUCT QUALITY ISSUE [None]
